FAERS Safety Report 4726332-5 (Version None)
Quarter: 2005Q3

REPORT INFORMATION
  Report Type: 
  Country: None (occurrence: None)
  Receive Date: 20050725
  Receipt Date: 20050712
  Transmission Date: 20060218
  Serious: Yes (Other)
  Sender: FDA-Public Use
  Company Number: 2005102546

PATIENT
  Age: 65 Year
  Sex: Female
  Weight: 72.5755 kg

DRUGS (9)
  1. CELEBREX [Suspect]
     Indication: OSTEOARTHRITIS
     Dosage: 200 MC
     Dates: start: 20000101, end: 20050101
  2. ACTONEL [Suspect]
     Indication: ILL-DEFINED DISORDER
  3. FOSAMAX [Suspect]
     Indication: ILL-DEFINED DISORDER
  4. CLONIDINE [Suspect]
     Indication: SLEEP DISORDER
     Dates: start: 20000101, end: 20000101
  5. SYNTHROID [Concomitant]
  6. NEURONTIN [Concomitant]
  7. TYLENOL W/ CODEINE [Concomitant]
  8. VITAMINS (VITAMINS) [Concomitant]
  9. GLUCOSAMINE (GLUCOSAMINE) [Concomitant]

REACTIONS (7)
  - BREAST CANCER FEMALE [None]
  - CATARACT OPERATION [None]
  - DRUG PRESCRIBING ERROR [None]
  - GLAUCOMA [None]
  - INSOMNIA [None]
  - MALIGNANT HYPERTENSION [None]
  - PURPURA SENILE [None]
